FAERS Safety Report 18472914 (Version 2)
Quarter: 2020Q4

REPORT INFORMATION
  Report Type: Spontaneous
  Country: US (occurrence: US)
  Receive Date: 20201106
  Receipt Date: 20201121
  Transmission Date: 20210114
  Serious: Yes (Hospitalization)
  Sender: FDA-Public Use
  Company Number: US-UNITED THERAPEUTICS-UNT-2020-016922

PATIENT
  Age: 45 Year
  Sex: Female
  Weight: 67.12 kg

DRUGS (4)
  1. SILDENAFIL CITRATE. [Concomitant]
     Active Substance: SILDENAFIL CITRATE
     Indication: PRODUCT USED FOR UNKNOWN INDICATION
     Dosage: UNK
     Route: 065
  2. REMODULIN [Suspect]
     Active Substance: TREPROSTINIL
     Indication: PULMONARY ARTERIAL HYPERTENSION
     Dosage: UNK, CONTINUING
     Route: 058
     Dates: start: 20200630
  3. REMODULIN [Suspect]
     Active Substance: TREPROSTINIL
     Dosage: 0.040 ?G/KG, CONTINUING
     Route: 058
     Dates: start: 2020
  4. AMBRISENTAN [Concomitant]
     Active Substance: AMBRISENTAN
     Indication: PRODUCT USED FOR UNKNOWN INDICATION
     Dosage: UNK
     Route: 065

REACTIONS (18)
  - Infusion site extravasation [Unknown]
  - Needle issue [Unknown]
  - Pulmonary arterial hypertension [Unknown]
  - Painful respiration [Unknown]
  - Diarrhoea [Unknown]
  - Feeling cold [Unknown]
  - Asthenia [Unknown]
  - Dizziness [Unknown]
  - Blood potassium decreased [Unknown]
  - Infusion site reaction [Unknown]
  - Blood pressure decreased [Unknown]
  - Hot flush [Unknown]
  - Vomiting [Unknown]
  - Drug delivery system issue [Unknown]
  - Incorrect dose administered [Unknown]
  - Pain [Unknown]
  - Nausea [Unknown]
  - Mobility decreased [Unknown]

NARRATIVE: CASE EVENT DATE: 2020
